FAERS Safety Report 11147515 (Version 2)
Quarter: 2015Q2

REPORT INFORMATION
  Report Type: Spontaneous
  Country: PT (occurrence: PT)
  Receive Date: 20150529
  Receipt Date: 20150629
  Transmission Date: 20150821
  Serious: Yes (Hospitalization, Other)
  Sender: FDA-Public Use
  Company Number: PT-MERCK-1505PRT011303

PATIENT
  Age: 35 Year
  Sex: Female
  Weight: 48 kg

DRUGS (3)
  1. PREGNYL [Suspect]
     Active Substance: CHORIOGONADOTROPIN ALFA
     Indication: INFERTILITY FEMALE
  2. CABERGOLINE. [Concomitant]
     Active Substance: CABERGOLINE
     Indication: PROPHYLAXIS
     Dosage: 0.5 MG, QD
  3. FOLLITROPIN BETA [Suspect]
     Active Substance: FOLLITROPIN
     Indication: INFERTILITY FEMALE
     Dosage: 1700IU

REACTIONS (3)
  - Ovarian hyperstimulation syndrome [Recovering/Resolving]
  - Maternal exposure before pregnancy [Recovered/Resolved]
  - Pancreatitis acute [Recovering/Resolving]
